FAERS Safety Report 11341995 (Version 3)
Quarter: 2017Q3

REPORT INFORMATION
  Report Type: Spontaneous
  Country: US (occurrence: US)
  Receive Date: 20150805
  Receipt Date: 20170915
  Transmission Date: 20171127
  Serious: Yes (Hospitalization)
  Sender: FDA-Public Use
  Company Number: US-DSJP-DSU-2015-124307

PATIENT

DRUGS (1)
  1. BENICAR [Suspect]
     Active Substance: OLMESARTAN MEDOXOMIL
     Indication: HYPERTENSION
     Dosage: 40 MG, UNK
     Dates: start: 20100809, end: 20130726

REACTIONS (15)
  - Renal cyst [Unknown]
  - Diverticulum intestinal [Unknown]
  - Asymptomatic bacteriuria [Unknown]
  - Large intestine polyp [Unknown]
  - Urge incontinence [Unknown]
  - Renal failure [Not Recovered/Not Resolved]
  - Emotional distress [Unknown]
  - Hypokalaemia [Unknown]
  - Malabsorption [Recovering/Resolving]
  - Cystitis [Unknown]
  - Gastrooesophageal reflux disease [Unknown]
  - Acidosis [Unknown]
  - Hyperkalaemia [Unknown]
  - Renal tubular necrosis [Unknown]
  - Hypernatraemia [Unknown]

NARRATIVE: CASE EVENT DATE: 201209
